FAERS Safety Report 23568891 (Version 1)
Quarter: 2024Q1

REPORT INFORMATION
  Report Type: Report from Study
  Country: US (occurrence: US)
  Receive Date: 20240227
  Receipt Date: 20240227
  Transmission Date: 20240410
  Serious: No
  Sender: FDA-Public Use
  Company Number: US-ORG100014127-2023000285

PATIENT
  Age: 65 Year
  Sex: Female

DRUGS (3)
  1. METOPIRONE [Suspect]
     Active Substance: METYRAPONE
     Indication: Pituitary-dependent Cushing^s syndrome
     Dosage: 1 CAPSULE BY MOUTH IN THE MORNING UPON AWAKENING, 1 CAPSULE AT MIDDAY AND 2 CAPSULES AT BEDTIME
     Route: 048
     Dates: start: 20201223
  2. Ciprofloxacin tablet 750 mg [Concomitant]
     Indication: Product used for unknown indication
  3. LYRICA [Concomitant]
     Active Substance: PREGABALIN
     Indication: Product used for unknown indication

REACTIONS (2)
  - Fatigue [Not Recovered/Not Resolved]
  - Off label use [Not Recovered/Not Resolved]

NARRATIVE: CASE EVENT DATE: 20201223
